FAERS Safety Report 10548381 (Version 1)
Quarter: 2014Q4

REPORT INFORMATION
  Report Type: Spontaneous
  Country: US (occurrence: None)
  Receive Date: 20141027
  Receipt Date: 20141027
  Transmission Date: 20150529
  Serious: No
  Sender: FDA-Public Use
  Company Number: None

PATIENT
  Age: 39 Year
  Sex: Female
  Weight: 60.33 kg

DRUGS (1)
  1. PEROXIE CARE TARTAR CONTROL HEALTHY GUMS BAKING SODA AND PEROXIDE [Suspect]
     Active Substance: SODIUM FLUORIDE
     Indication: DENTAL DISORDER PROPHYLAXIS
     Dates: start: 20141025, end: 20141025

REACTIONS (7)
  - Tongue coated [None]
  - Tongue discolouration [None]
  - Tongue ulceration [None]
  - Gingival swelling [None]
  - Lip swelling [None]
  - Painful respiration [None]
  - Gingival ulceration [None]

NARRATIVE: CASE EVENT DATE: 20141025
